FAERS Safety Report 14565276 (Version 7)
Quarter: 2018Q4

REPORT INFORMATION
  Report Type: Spontaneous
  Country: RU (occurrence: RU)
  Receive Date: 20180223
  Receipt Date: 20181206
  Transmission Date: 20190204
  Serious: Yes (Hospitalization, Other)
  Sender: FDA-Public Use
  Company Number: RU-ASTRAZENECA-2018SE20890

PATIENT
  Age: 66 Year
  Sex: Female
  Weight: 83 kg

DRUGS (7)
  1. EKVATOR [Concomitant]
  2. THROMBO ASS [Concomitant]
     Active Substance: ASPIRIN
  3. CARDIOMAGNYL [Concomitant]
     Active Substance: ASPIRIN\MAGNESIUM HYDROXIDE
  4. PREDUCTAL A [Concomitant]
  5. CONCOR [Concomitant]
     Active Substance: BISOPROLOL FUMARATE
  6. ATORVASTATIN [Concomitant]
     Active Substance: ATORVASTATIN
  7. BRILINTA [Suspect]
     Active Substance: TICAGRELOR
     Indication: MYOCARDIAL INFARCTION
     Route: 048
     Dates: start: 201711

REACTIONS (10)
  - Memory impairment [Not Recovered/Not Resolved]
  - Myocardial infarction [Recovered/Resolved]
  - Gastric ulcer [Unknown]
  - Cough [Recovering/Resolving]
  - Arrhythmia [Unknown]
  - Venous thrombosis limb [Not Recovered/Not Resolved]
  - Dyspnoea [Recovered/Resolved]
  - Faeces discoloured [Recovered/Resolved]
  - Contusion [Not Recovered/Not Resolved]
  - Chest pain [Recovered/Resolved]

NARRATIVE: CASE EVENT DATE: 201711
